FAERS Safety Report 15491632 (Version 1)
Quarter: 2018Q4

REPORT INFORMATION
  Report Type: Report from Study
  Country: None (occurrence: US)
  Receive Date: 20181012
  Receipt Date: 20181012
  Transmission Date: 20190205
  Serious: Yes (Hospitalization)
  Sender: FDA-Public Use
  Company Number: US-ABBVIE-18K-163-2507448-00

PATIENT
  Age: 65 Year
  Sex: Male
  Weight: 56 kg

DRUGS (2)
  1. VENETOCLAX. [Suspect]
     Active Substance: VENETOCLAX
     Indication: B-CELL LYMPHOMA
     Route: 048
     Dates: start: 20180321, end: 20180602
  2. IBRUTINIB [Suspect]
     Active Substance: IBRUTINIB
     Indication: B-CELL LYMPHOMA
     Route: 048
     Dates: start: 20180321, end: 20180602

REACTIONS (14)
  - Nausea [Not Recovered/Not Resolved]
  - Failure to thrive [Not Recovered/Not Resolved]
  - Decreased appetite [Not Recovered/Not Resolved]
  - Spinal compression fracture [Unknown]
  - Weight decreased [Unknown]
  - Hypercalcaemia [Unknown]
  - Computerised tomogram abnormal [Unknown]
  - Hypophagia [Unknown]
  - Abdominal distension [Unknown]
  - Retroperitoneal lymphadenopathy [Unknown]
  - Pyrexia [Unknown]
  - Hyponatraemia [Unknown]
  - Diarrhoea [Not Recovered/Not Resolved]
  - Fatigue [Not Recovered/Not Resolved]

NARRATIVE: CASE EVENT DATE: 2018
